FAERS Safety Report 10050149 (Version 1)
Quarter: 2014Q1

REPORT INFORMATION
  Report Type: Spontaneous
  Country: US (occurrence: None)
  Receive Date: 20140331
  Receipt Date: 20140331
  Transmission Date: 20141002
  Serious: Yes (Other)
  Sender: FDA-Public Use
  Company Number: None

PATIENT
  Age: 39 Year
  Sex: Female
  Weight: 75.75 kg

DRUGS (1)
  1. ZOFRAN [Suspect]
     Indication: GASTROENTERITIS VIRAL
     Dosage: 1 PILL THREE TIMES DAILY TAKEN BY MOUTH
     Route: 048
     Dates: start: 20140327, end: 20140327

REACTIONS (5)
  - Headache [None]
  - Syncope [None]
  - Pyrexia [None]
  - Dehydration [None]
  - Eating disorder [None]
